FAERS Safety Report 24379434 (Version 1)
Quarter: 2024Q3

REPORT INFORMATION
  Report Type: Spontaneous
  Country: FR (occurrence: FR)
  Receive Date: 20240930
  Receipt Date: 20240930
  Transmission Date: 20241017
  Serious: Yes (Hospitalization)
  Sender: NOVARTIS
  Company Number: FR-002147023-NVSC2024FR192743

PATIENT
  Age: 83 Year
  Sex: Male

DRUGS (1)
  1. ENTRESTO [Suspect]
     Active Substance: SACUBITRIL\VALSARTAN
     Indication: Cardiac failure
     Dosage: UNK (24/26MG)
     Route: 065

REACTIONS (3)
  - Hypotension [Unknown]
  - Fall [Unknown]
  - Head injury [Unknown]
